FAERS Safety Report 10087075 (Version 1)
Quarter: 2014Q2

REPORT INFORMATION
  Report Type: Spontaneous
  Country: US (occurrence: US)
  Receive Date: 20140418
  Receipt Date: 20140418
  Transmission Date: 20141212
  Serious: Yes (Other)
  Sender: FDA-Public Use
  Company Number: US-ELI_LILLY_AND_COMPANY-US201404002488

PATIENT
  Age: 68 Year
  Sex: Male

DRUGS (11)
  1. CYMBALTA [Suspect]
     Indication: ANXIETY
     Dosage: 60 MG, QD
     Route: 065
     Dates: end: 201401
  2. CYMBALTA [Suspect]
     Indication: PAIN
     Dosage: 60 MG, UNK
     Dates: start: 20140331
  3. DULOXETINE HYDROCHLORIDE [Suspect]
     Indication: ANXIETY
     Dosage: UNK
     Route: 065
     Dates: start: 201401, end: 20140330
  4. DULOXETINE HYDROCHLORIDE [Suspect]
     Indication: PAIN
  5. CIALIS [Suspect]
     Indication: ERECTILE DYSFUNCTION
     Dosage: 5 MG, QD
     Route: 065
     Dates: start: 2013
  6. CIALIS [Suspect]
     Indication: CARDIOVASCULAR DISORDER
     Dosage: 20 MG, PRN
  7. LISINOPRIL [Concomitant]
  8. ATORVASTAN [Concomitant]
  9. CITRACAL [Concomitant]
  10. VITAMIN D                          /00107901/ [Concomitant]
  11. PANTOPRAZOL [Concomitant]

REACTIONS (6)
  - Prostate cancer [Unknown]
  - Drug ineffective [Recovered/Resolved]
  - Overdose [Unknown]
  - Drug ineffective [Unknown]
  - Fall [Recovered/Resolved]
  - Rib fracture [Unknown]
